FAERS Safety Report 18921573 (Version 1)
Quarter: 2021Q1

REPORT INFORMATION
  Report Type: Spontaneous
  Country: US (occurrence: US)
  Receive Date: 20210219
  Receipt Date: 20210219
  Transmission Date: 20210420
  Serious: Yes (Hospitalization)
  Sender: FDA-Public Use
  Company Number: None

PATIENT
  Age: 55 Year
  Sex: Female
  Weight: 60 kg

DRUGS (1)
  1. ASPIRIN. [Suspect]
     Active Substance: ASPIRIN
     Dates: end: 20210211

REACTIONS (16)
  - Tooth abscess [None]
  - Proctitis [None]
  - Fatigue [None]
  - Hypokalaemia [None]
  - Diarrhoea [None]
  - Gastrointestinal haemorrhage [None]
  - Colitis [None]
  - Inflammation [None]
  - Rectal haemorrhage [None]
  - Abdominal pain [None]
  - Haematochezia [None]
  - Dehydration [None]
  - Anal incontinence [None]
  - Mucous stools [None]
  - Tachycardia [None]
  - Colitis ulcerative [None]

NARRATIVE: CASE EVENT DATE: 20210211
